FAERS Safety Report 8533210-2 (Version None)
Quarter: 2012Q3

REPORT INFORMATION
  Report Type: 
  Country: None (occurrence: None)
  Receive Date: 20120724
  Receipt Date: 20120719
  Transmission Date: 20120928
  Serious: Yes (Hospitalization, Other)
  Sender: FDA-Public Use
  Company Number: CH-PFIZER INC-2012174327

PATIENT
  Age: 49 Year
  Sex: Male

DRUGS (3)
  1. EFFEXOR [Suspect]
     Indication: DEPRESSION
     Dosage: 75 MG, 2X/DAY, LONG TERM USE
     Route: 048
  2. WELLBUTRIN [Interacting]
     Indication: DEPRESSION
     Dosage: 300 MG, 1X/DAY
     Route: 048
     Dates: end: 20120502
  3. REMERON [Interacting]
     Indication: DEPRESSION
     Dosage: 15 MG, 1X/DAY, LONG TERM USE
     Route: 048

REACTIONS (2)
  - GRAND MAL CONVULSION [None]
  - DRUG INTERACTION [None]
